FAERS Safety Report 8090370-8 (Version None)
Quarter: 2012Q1

REPORT INFORMATION
  Report Type: 
  Country: None (occurrence: None)
  Receive Date: 20120129
  Receipt Date: 20111201
  Transmission Date: 20120608
  Serious: No
  Sender: FDA-Public Use
  Company Number: US-ABBOTT-11P-163-0879588-00

PATIENT
  Weight: 46.308 kg

DRUGS (4)
  1. HUMIRA [Suspect]
  2. PREDNISONE TAB [Suspect]
     Indication: PRODUCT USED FOR UNKNOWN INDICATION
  3. IMURAN [Concomitant]
     Indication: PRODUCT USED FOR UNKNOWN INDICATION
     Dosage: 100 MG DAILY
  4. HUMIRA [Suspect]
     Indication: PRODUCT USED FOR UNKNOWN INDICATION
     Dates: start: 20110501

REACTIONS (2)
  - WEIGHT DECREASED [None]
  - METABOLIC DISORDER [None]
